FAERS Safety Report 7278765-3 (Version None)
Quarter: 2011Q1

REPORT INFORMATION
  Report Type: 
  Country: None (occurrence: None)
  Receive Date: 20110207
  Receipt Date: 20110203
  Transmission Date: 20110831
  Serious: Yes (Hospitalization, Other)
  Sender: FDA-Public Use
  Company Number: US-PFIZER INC-2010108371

PATIENT
  Sex: Female

DRUGS (2)
  1. CHANTIX [Suspect]
     Indication: SMOKING CESSATION THERAPY
     Dosage: STARTER PACK
     Dates: start: 20090222
  2. CHANTIX [Suspect]
     Dosage: 1 MG, CONTINUOUS PACK
     Dates: start: 20090301, end: 20090601

REACTIONS (6)
  - MENTAL DISORDER [None]
  - AMNESIA [None]
  - INTENTIONAL OVERDOSE [None]
  - SUICIDE ATTEMPT [None]
  - DEPRESSION [None]
  - DISTURBANCE IN ATTENTION [None]
